FAERS Safety Report 15234006 (Version 1)
Quarter: 2018Q4

REPORT INFORMATION
  Report Type: Spontaneous
  Country: ES (occurrence: ES)
  Receive Date: 20180802
  Receipt Date: 20180802
  Transmission Date: 20190204
  Serious: Yes (Other)
  Sender: FDA-Public Use
  Company Number: PHHY2018ES063808

PATIENT
  Sex: Female

DRUGS (3)
  1. BISOLVON ANTITUSIVO COMPOSITUM [Suspect]
     Active Substance: DEXTROMETHORPHAN\DIPHENHYDRAMINE
     Indication: NASOPHARYNGITIS
     Dosage: UNK
     Route: 048
  2. AMOXICILLIN+CLAVULANIC ACID [Suspect]
     Active Substance: AMOXICILLIN\CLAVULANIC ACID
     Indication: NASOPHARYNGITIS
     Dosage: UNK
     Route: 065
  3. BISOLGRIP (ASPIRIN\BROMHEXINE\CODEINE) [Suspect]
     Active Substance: ASPIRIN\BROMHEXINE\CODEINE
     Indication: NASOPHARYNGITIS
     Dosage: UNK
     Route: 048

REACTIONS (4)
  - Rash generalised [Recovered/Resolved]
  - Vomiting [Recovered/Resolved]
  - Hypersensitivity [Recovered/Resolved]
  - Choking [Recovered/Resolved]
